FAERS Safety Report 21218218 (Version 1)
Quarter: 2022Q3

REPORT INFORMATION
  Report Type: Spontaneous
  Country: US (occurrence: None)
  Receive Date: 20220816
  Receipt Date: 20220816
  Transmission Date: 20221027
  Serious: Yes (Hospitalization)
  Sender: FDA-Public Use
  Company Number: None

PATIENT
  Age: 49 Year
  Sex: Female
  Weight: 51.3 kg

DRUGS (21)
  1. CARBOPLATIN [Suspect]
     Active Substance: CARBOPLATIN
     Dates: end: 20220719
  2. GEMCITABINE HYDROCHLORIDE [Suspect]
     Active Substance: GEMCITABINE HYDROCHLORIDE
     Dates: end: 20220719
  3. ACETAMINOPHEN [Concomitant]
     Active Substance: ACETAMINOPHEN
  4. ADDERALL [Concomitant]
     Active Substance: AMPHETAMINE ASPARTATE\AMPHETAMINE SULFATE\DEXTROAMPHETAMINE SACCHARATE\DEXTROAMPHETAMINE SULFATE
  5. COMPAZINE [Concomitant]
     Active Substance: PROCHLORPERAZINE MALEATE
  6. FENTANYL TRANSDERMAL SYSTEM [Concomitant]
     Active Substance: FENTANYL
  7. HYDROMORPHONE [Concomitant]
     Active Substance: HYDROMORPHONE
  8. IBUPROFEN [Concomitant]
     Active Substance: IBUPROFEN
  9. LACTULOSE [Concomitant]
     Active Substance: LACTULOSE
  10. LEVOTHYROXINE [Concomitant]
     Active Substance: LEVOTHYROXINE
  11. LORAZEPAM [Concomitant]
     Active Substance: LORAZEPAM
  12. MOVANTIK [Concomitant]
  13. MULTIVITAMIN WITH FOLIC ACID [Concomitant]
  14. NARCAN [Concomitant]
     Active Substance: NALOXONE HYDROCHLORIDE
  15. TRANSDERM-SCOP PATCH [Concomitant]
  16. TRAZODONE [Concomitant]
     Active Substance: TRAZODONE HYDROCHLORIDE
  17. VITAMIN C [Concomitant]
     Active Substance: ASCORBIC ACID
  18. VITAMIN D3 [Concomitant]
     Active Substance: CHOLECALCIFEROL
  19. ZOFRAN [Concomitant]
     Active Substance: ONDANSETRON HYDROCHLORIDE
  20. MELATONIN [Concomitant]
     Active Substance: MELATONIN
  21. MILK OF MAGNESIA [Concomitant]
     Active Substance: MAGNESIUM HYDROXIDE

REACTIONS (7)
  - Pneumonia [None]
  - Constipation [None]
  - Platelet count decreased [None]
  - Joint swelling [None]
  - Oxygen saturation decreased [None]
  - Dyspnoea exertional [None]
  - Therapy interrupted [None]

NARRATIVE: CASE EVENT DATE: 20220804
